FAERS Safety Report 9096343 (Version 1)
Quarter: 2013Q1

REPORT INFORMATION
  Report Type: Spontaneous
  Country: US (occurrence: US)
  Receive Date: 20130207
  Receipt Date: 20130207
  Transmission Date: 20140127
  Serious: Yes (Hospitalization)
  Sender: FDA-Public Use
  Company Number: US-BAYER-2013-014936

PATIENT
  Age: 30 Year
  Sex: Female
  Weight: 59 kg

DRUGS (9)
  1. GIANVI [Suspect]
  2. YASMIN [Suspect]
  3. NORCO [Concomitant]
     Indication: PAIN
  4. PLAVIX [Concomitant]
  5. MORPHINE [Concomitant]
     Indication: PAIN
  6. DUCOLAX [Concomitant]
  7. FLEXERIL [Concomitant]
  8. NAPROXEN [Concomitant]
  9. NEXIUM [Concomitant]

REACTIONS (1)
  - Deep vein thrombosis [None]
